FAERS Safety Report 5275228-1 (Version None)
Quarter: 2007Q1

REPORT INFORMATION
  Report Type: 
  Country: None (occurrence: None)
  Receive Date: 20070326
  Receipt Date: 20070312
  Transmission Date: 20070707
  Serious: Yes (Other)
  Sender: FDA-Public Use
  Company Number: US-SANOFI-SYNTHELABO-A03200702177

PATIENT
  Sex: Female

DRUGS (5)
  1. LEVOTHYROXINE SODIUM [Concomitant]
     Dosage: UNK
     Route: 048
  2. TARKA WATER [Concomitant]
     Dosage: UNK
     Route: 048
  3. PAXIL [Concomitant]
     Dosage: UNK
     Route: 048
  4. AMBIEN [Suspect]
     Indication: INSOMNIA
     Route: 048
     Dates: start: 20040719, end: 20060310
  5. AMBIEN [Suspect]
     Indication: BLOOD PRESSURE
     Route: 048
     Dates: start: 20040719, end: 20060310

REACTIONS (10)
  - AMNESIA [None]
  - CONFUSIONAL STATE [None]
  - EATING DISORDER [None]
  - PAIN [None]
  - PHOBIA [None]
  - POISONING [None]
  - ROAD TRAFFIC ACCIDENT [None]
  - SLEEP WALKING [None]
  - TOOTH FRACTURE [None]
  - WEIGHT INCREASED [None]
